FAERS Safety Report 21481770 (Version 1)
Quarter: 2022Q4

REPORT INFORMATION
  Report Type: Spontaneous
  Country: AU (occurrence: AU)
  Receive Date: 20221020
  Receipt Date: 20221020
  Transmission Date: 20230113
  Serious: Yes (Hospitalization)
  Sender: FDA-Public Use
  Company Number: AU-ABBVIE-4168017

PATIENT
  Sex: Female

DRUGS (1)
  1. HUMIRA [Suspect]
     Active Substance: ADALIMUMAB
     Indication: Juvenile idiopathic arthritis
     Dosage: TIME INTERVAL: 0.18181818 WEEKS: STRENGTH: 40 MG
     Route: 058
     Dates: start: 202205, end: 202210

REACTIONS (5)
  - Lymphadenitis [Unknown]
  - Menstrual disorder [Unknown]
  - Lymph node pain [Unknown]
  - Inflammatory marker increased [Unknown]
  - Palpitations [Unknown]

NARRATIVE: CASE EVENT DATE: 20220101
